FAERS Safety Report 9710822 (Version 2)
Quarter: 2013Q4

REPORT INFORMATION
  Report Type: Spontaneous
  Country: US (occurrence: US)
  Receive Date: 20131126
  Receipt Date: 20131126
  Transmission Date: 20140711
  Serious: No
  Sender: FDA-Public Use
  Company Number: US-BRISTOL-MYERS SQUIBB COMPANY-19013630

PATIENT
  Age: 60 Year
  Sex: Female
  Weight: 133.78 kg

DRUGS (5)
  1. BYDUREON [Suspect]
     Indication: DIABETES MELLITUS INADEQUATE CONTROL
     Dosage: 07-JUN-2013, 11-JUN-2013 AND 16-JUN-2013 AND THEN ONCE WEEKLY THEREAFTER
     Route: 058
     Dates: start: 20130607
  2. PRAVASTATINE [Concomitant]
  3. METFORMIN [Concomitant]
  4. AMLODIPINE [Concomitant]
  5. LISINOPRIL [Concomitant]

REACTIONS (1)
  - Back pain [Not Recovered/Not Resolved]
